FAERS Safety Report 9520016 (Version 2)
Quarter: 2014Q1

REPORT INFORMATION
  Report Type: Spontaneous
  Country: US (occurrence: None)
  Receive Date: 20130305
  Receipt Date: 20140306
  Transmission Date: 20141002
  Serious: Yes (Other)
  Sender: FDA-Public Use
  Company Number: 163-21880-12090192

PATIENT
  Age: 58 Year
  Sex: Female
  Weight: 120 kg

DRUGS (23)
  1. REVLIMID [Suspect]
     Indication: PLASMA CELL MYELOMA
     Dosage: 21 IN 28 D
     Route: 048
     Dates: start: 20120207
  2. ZOLEDRONIC ACID (ZOLEDRONIC ACID) [Concomitant]
  3. CALCIUM EITH VITAMIN D(CALCIUM WITH VITAMIN D) [Concomitant]
  4. CENTRUM SILVER (CENTRUM SILVER) [Concomitant]
  5. COLACE [Concomitant]
  6. COUMADIN (WARFARIN SODIUM) [Concomitant]
  7. FENTANYL (FENTANYL) (POULTICE OR PATCH) [Concomitant]
  8. FUROSEMIDE (FUROSEMIDE) [Concomitant]
  9. GLIPIZIDE (GLIPIZIDE) [Concomitant]
  10. HYDROCODONE/ACETAMINOPHEN (REMEDEINE) [Concomitant]
  11. LEVAQUIN (LEVOFLOXACIN) [Concomitant]
  12. LISINOPRIL (LISINOPRIL) [Concomitant]
  13. LORAZEPAM (LORAZEPAM) [Concomitant]
  14. MAGIC MOUTHWASH (ALL OTHER THERAPEUTIC PRODUCTS) [Concomitant]
  15. METFORMIN HCL (METFORMIN HYDROCHLORIDE) [Concomitant]
  16. PANTOPRAZOLE SODIUM (PANTOPRAZOLE SODIUM) [Concomitant]
  17. POTASSIUM CHLORIDE (POTASSIUM CHLORIDE) [Concomitant]
  18. PROCHLORPERAZINE MALEATE (PROCHLORPERAZINE MALEATE) [Concomitant]
  19. SPIRONOOLACTONE (SPIRONOLACTONE) [Concomitant]
  20. DEXAMETHASONE (DEXAMETHASONE) [Concomitant]
  21. DOCUSATE SODIUM (DOCUSATE SODIUM) [Concomitant]
  22. OMEPRAZOLE (OMEPRAZOLE) [Concomitant]
  23. POTASSIUM GLUCONATE (POTASSIUM GLUCONATE) [Concomitant]

REACTIONS (6)
  - Platelet count decreased [None]
  - Plasma cell myeloma [None]
  - Pancytopenia [None]
  - Drug intolerance [None]
  - Diarrhoea [None]
  - Fatigue [None]
